FAERS Safety Report 4956508-3 (Version None)
Quarter: 2006Q1

REPORT INFORMATION
  Report Type: 
  Country: None (occurrence: None)
  Receive Date: 20060329
  Receipt Date: 20050817
  Transmission Date: 20060701
  Serious: Yes (Hospitalization)
  Sender: FDA-Public Use
  Company Number: US-MERCK-0508USA03103

PATIENT
  Age: 55 Year
  Sex: Male
  Weight: 93 kg

DRUGS (2)
  1. VIOXX [Suspect]
     Indication: MONARTHRITIS
     Route: 048
     Dates: start: 20010101, end: 20040801
  2. VIOXX [Suspect]
     Indication: PAIN
     Route: 048
     Dates: start: 20010101, end: 20040801

REACTIONS (3)
  - ABDOMINAL PAIN UPPER [None]
  - DIVERTICULUM [None]
  - MYOCARDIAL INFARCTION [None]
